FAERS Safety Report 5210572-5 (Version None)
Quarter: 2007Q1

REPORT INFORMATION
  Report Type: 
  Country: None (occurrence: None)
  Receive Date: 20070117
  Receipt Date: 20070112
  Transmission Date: 20070707
  Serious: Yes (Other)
  Sender: FDA-Public Use
  Company Number: 2006UW17702

PATIENT
  Age: 81 Year
  Sex: Male
  Weight: 77.1 kg

DRUGS (5)
  1. NEXIUM [Suspect]
     Indication: REFLUX OESOPHAGITIS
     Route: 048
  2. ALEVE [Concomitant]
  3. VITAMINS [Concomitant]
  4. ASTELIN [Concomitant]
  5. NASACORT AQ [Concomitant]

REACTIONS (2)
  - HEADACHE [None]
  - TEMPORAL ARTERITIS [None]
